FAERS Safety Report 22377768 (Version 2)
Quarter: 2023Q2

REPORT INFORMATION
  Report Type: Spontaneous
  Country: TW (occurrence: TW)
  Receive Date: 20230529
  Receipt Date: 20230615
  Transmission Date: 20230722
  Serious: No
  Sender: FDA-Public Use
  Company Number: TW-JNJFOC-20230552022

PATIENT

DRUGS (3)
  1. INVEGA TRINZA [Suspect]
     Active Substance: PALIPERIDONE PALMITATE
     Indication: Product used for unknown indication
     Route: 030
  2. INVEGA TRINZA [Suspect]
     Active Substance: PALIPERIDONE PALMITATE
  3. INVEGA TRINZA [Suspect]
     Active Substance: PALIPERIDONE PALMITATE

REACTIONS (1)
  - Needle issue [Unknown]
